FAERS Safety Report 6121120-X (Version None)
Quarter: 2009Q1

REPORT INFORMATION
  Report Type: 
  Country: None (occurrence: None)
  Receive Date: 20090317
  Receipt Date: 20090311
  Transmission Date: 20090719
  Serious: Yes (Death)
  Sender: FDA-Public Use
  Company Number: A0772536A

PATIENT
  Age: 23 Year
  Sex: Male

DRUGS (3)
  1. LAMICTAL [Suspect]
     Indication: EPILEPSY
     Dosage: 150MG TWICE PER DAY
     Route: 048
     Dates: start: 20080101
  2. PAXIL [Concomitant]
  3. UNSPECIFIED MEDICATION [Concomitant]
     Indication: SLEEP DISORDER
     Route: 065

REACTIONS (3)
  - CONVULSION [None]
  - DEATH [None]
  - ROAD TRAFFIC ACCIDENT [None]
